FAERS Safety Report 14572615 (Version 6)
Quarter: 2018Q2

REPORT INFORMATION
  Report Type: Spontaneous
  Country: JP (occurrence: JP)
  Receive Date: 20180226
  Receipt Date: 20180507
  Transmission Date: 20180711
  Serious: Yes (Hospitalization, Other)
  Sender: FDA-Public Use
  Company Number: JP-PFIZER INC-2018072183

PATIENT
  Age: 43 Year
  Sex: Female
  Weight: 53.4 kg

DRUGS (5)
  1. DOCETAXEL. [Suspect]
     Active Substance: DOCETAXEL
     Dosage: CYCLE 2, 300 MG/BODY
  2. TRASTUZUMAB. [Suspect]
     Active Substance: TRASTUZUMAB
     Indication: BREAST CANCER STAGE III
     Dosage: CYCLE 1, 300 MG/BODY
  3. DOCETAXEL. [Suspect]
     Active Substance: DOCETAXEL
     Dosage: CYCLE 2, 110 MG/BODY
  4. DOCETAXEL. [Suspect]
     Active Substance: DOCETAXEL
     Indication: BREAST CANCER STAGE III
     Dosage: CYCLE 1, 110 MG/BODY
  5. TRASTUZUMAB. [Suspect]
     Active Substance: TRASTUZUMAB
     Dosage: CYCLE 2

REACTIONS (7)
  - Bone marrow failure [Recovering/Resolving]
  - Pelvic abscess [Recovering/Resolving]
  - Peritoneal abscess [Recovering/Resolving]
  - White blood cell count decreased [Recovered/Resolved]
  - Leukopenia [Recovering/Resolving]
  - Appendicitis [Recovering/Resolving]
  - Gastroenteritis [Recovering/Resolving]
